FAERS Safety Report 8269459-6 (Version None)
Quarter: 2012Q2

REPORT INFORMATION
  Report Type: 
  Country: None (occurrence: None)
  Receive Date: 20120409
  Receipt Date: 20120330
  Transmission Date: 20120825
  Serious: Yes (Other)
  Sender: FDA-Public Use
  Company Number: US-BAYER-2011-085630

PATIENT
  Age: 43 Year
  Sex: Female
  Weight: 84.354 kg

DRUGS (19)
  1. IMODIUM [Concomitant]
  2. SINGULAIR [Concomitant]
     Dosage: 10 MG, UNK
     Dates: start: 20090603
  3. ACETAMINOPHEN W/ CODEINE NO. 3 [Concomitant]
     Dosage: UNK
     Route: 048
     Dates: start: 20090709
  4. KLOR-CON M20 [Concomitant]
     Dosage: UNK
     Route: 048
     Dates: start: 20090715
  5. ALBUTEROL [Concomitant]
     Indication: ASTHMA
  6. ALBUTEROL SULFATE [Concomitant]
     Dosage: 90 MCG
     Route: 045
     Dates: start: 20080507, end: 20110919
  7. NITROFURANTOIN (MONOHYDRATE/MACROCRYSTALS) [Concomitant]
     Dosage: UNK
     Dates: start: 20090925
  8. IBUPROFEN [Concomitant]
     Dosage: 600 MG
     Route: 048
     Dates: start: 20090714
  9. FLOMAX [Concomitant]
     Dosage: 0.4 MG, UNK
     Route: 048
     Dates: start: 20090728
  10. YAZ [Suspect]
     Indication: PREMENSTRUAL SYNDROME
     Dates: start: 20080101, end: 20090501
  11. TYLENOL (CAPLET) [Concomitant]
     Indication: HEADACHE
  12. METAMUCIL-2 [Concomitant]
     Dosage: UNK
     Dates: start: 20090518
  13. FUROSEMIDE [Concomitant]
     Dosage: 40 MG, UNK
     Route: 048
     Dates: start: 20090715
  14. ZYRTEC [Concomitant]
     Dosage: 10 MG, UNK
  15. TRAMADOL HCL [Concomitant]
     Dosage: 50 MG, UNK
     Route: 048
     Dates: start: 20090731
  16. ADVAIR DISKUS 100/50 [Concomitant]
     Indication: ASTHMA
  17. SINGULAIR [Concomitant]
     Dosage: 10 MG
     Route: 048
     Dates: start: 20090616
  18. ADVAIR DISKUS 100/50 [Concomitant]
     Dosage: 500-50
     Route: 045
     Dates: start: 20060413, end: 20110811
  19. CIPROFLAXACIN HD [Concomitant]
     Dosage: 250 MG, UNK
     Route: 048
     Dates: start: 20090801

REACTIONS (9)
  - PAIN [None]
  - CHOLECYSTITIS CHRONIC [None]
  - GALLBLADDER DISORDER [None]
  - INJURY [None]
  - NEPHROLITHIASIS [None]
  - EMOTIONAL DISTRESS [None]
  - ANXIETY [None]
  - RENAL FAILURE [None]
  - PSYCHOLOGICAL TRAUMA [None]
